FAERS Safety Report 9889072 (Version 2)
Quarter: 2014Q1

REPORT INFORMATION
  Report Type: Spontaneous
  Country: US (occurrence: US)
  Receive Date: 20140211
  Receipt Date: 20140212
  Transmission Date: 20141002
  Serious: Yes (Other)
  Sender: FDA-Public Use
  Company Number: US-RB-062673-14

PATIENT
  Age: 49 Year
  Sex: Female

DRUGS (7)
  1. MUCINEX FAST-MAX DM MAX [Suspect]
     Indication: PRODUCT USED FOR UNKNOWN INDICATION
     Dosage: 2 CAPLETS EVERY 4 HOURS; PATIENT LAST TOOK DRUG ON 24-JAN-2014
     Route: 048
     Dates: start: 20140123
  2. MUCINEX FAST MAX CAPLET DAY (DEXTROMETHORPHAN) [Suspect]
  3. MUCINEX FAST MAX CAPLET DAY (GUAIFENESIN) [Suspect]
  4. MUCINEX FAST MAX CAPLET DAY (PHENYLEPHRINE) [Suspect]
  5. MUCINEX FAST MAX CAPLET NIGHT (ACETAMINOPHEN) [Suspect]
     Indication: PRODUCT USED FOR UNKNOWN INDICATION
     Dosage: 2 CAPLETS EVERY 4 HOURS; PATIENT LAST TOOK DRUG ON 24-JAN-2014
     Route: 048
     Dates: start: 20140123
  6. MUCINEX FAST MAX CAPLET NIGHT (DIPHENHYDRAMINE) [Suspect]
  7. MUCINEX FAST MAX CAPLET NIGHT (PHENYLEPHRINE) [Suspect]

REACTIONS (4)
  - Amnesia [Recovered/Resolved]
  - Confusional state [Recovered/Resolved]
  - Disorientation [Recovered/Resolved]
  - Condition aggravated [Recovered/Resolved]
